FAERS Safety Report 10709521 (Version 2)
Quarter: 2015Q1

REPORT INFORMATION
  Report Type: Spontaneous
  Country: US (occurrence: US)
  Receive Date: 20150114
  Receipt Date: 20150205
  Transmission Date: 20150721
  Serious: Yes (Disabling, Other)
  Sender: FDA-Public Use
  Company Number: US-ROCHE-1520559

PATIENT
  Sex: Male

DRUGS (6)
  1. AVASTIN [Suspect]
     Active Substance: BEVACIZUMAB
     Indication: RETINAL VEIN OCCLUSION
  2. AVASTIN [Suspect]
     Active Substance: BEVACIZUMAB
     Indication: DIABETIC RETINOPATHY
     Dosage: 0.05CC FOR BOTH EYE
     Route: 050
     Dates: start: 20131001
  3. VANCOMYCIN [Concomitant]
     Active Substance: VANCOMYCIN
     Route: 065
  4. FORTAZ [Concomitant]
     Active Substance: CEFTAZIDIME SODIUM
     Route: 065
  5. CEFTRIAXONE. [Concomitant]
     Active Substance: CEFTRIAXONE
     Route: 065
  6. AVASTIN [Suspect]
     Active Substance: BEVACIZUMAB
     Indication: AGE-RELATED MACULAR DEGENERATION
     Dosage: 0.05CC FOR BOTH EYE
     Route: 050
     Dates: start: 20130807

REACTIONS (9)
  - Anxiety [Unknown]
  - Product use issue [Unknown]
  - Visual acuity reduced [Unknown]
  - Retinal detachment [Unknown]
  - Endophthalmitis [Unknown]
  - Photopsia [Unknown]
  - Blindness [Unknown]
  - Suspected transmission of an infectious agent via product [Unknown]
  - Vitreous floaters [Unknown]
